FAERS Safety Report 10609839 (Version 3)
Quarter: 2015Q1

REPORT INFORMATION
  Report Type: Spontaneous
  Country: FR (occurrence: None)
  Receive Date: 20141124
  Receipt Date: 20150206
  Transmission Date: 20150720
  Serious: Yes (Hospitalization, Other)
  Sender: FDA-Public Use
  Company Number: FR2014GSK021502

PATIENT
  Age: 52 Year
  Sex: Male

DRUGS (2)
  1. TRUVADA (TRUVADA) [Concomitant]
  2. TIVICAY [Suspect]
     Active Substance: DOLUTEGRAVIR SODIUM
     Indication: HIV INFECTION
     Route: 048
     Dates: start: 20140724, end: 20140813

REACTIONS (4)
  - Hyperkalaemia [None]
  - Rhabdomyolysis [None]
  - Acute kidney injury [None]
  - Acidosis [None]

NARRATIVE: CASE EVENT DATE: 20140816
